FAERS Safety Report 7590814-1 (Version None)
Quarter: 2011Q3

REPORT INFORMATION
  Report Type: 
  Country: None (occurrence: None)
  Receive Date: 20110705
  Receipt Date: 20110621
  Transmission Date: 20111222
  Serious: Yes (Other)
  Sender: FDA-Public Use
  Company Number: PHHY2011US44555

PATIENT
  Sex: Female

DRUGS (18)
  1. RECLAST [Suspect]
     Indication: OSTEOPOROSIS POSTMENOPAUSAL
     Dosage: 5 MG
     Route: 042
     Dates: start: 20100617
  2. LISINOPRIL [Concomitant]
     Dosage: 10 MG, QD
  3. ZINC [Concomitant]
  4. METHOTREXATE [Concomitant]
  5. PREDNISONE [Concomitant]
     Dosage: 10 MG
  6. HYDROCHLOROTHIAZIDE [Concomitant]
     Dosage: 25 MG, QD
  7. PROZAC [Concomitant]
     Dosage: 20 MG, QD
  8. ARAVA [Concomitant]
     Dosage: 20 MG, UNK
  9. MAGNESIUM [Concomitant]
  10. LEUCOVORIN CALCIUM [Concomitant]
     Dosage: 5 MG, UNK
  11. ALBUTEROL SULFATE AUTOHALER [Concomitant]
  12. IMURAN [Concomitant]
     Dosage: 50 MG, UNK
  13. FOLIC ACID [Concomitant]
  14. TRAZODONE HCL [Concomitant]
     Dosage: 50 MG, UNK
  15. DARVOCET [Concomitant]
  16. PRILOSEC [Concomitant]
  17. POTASSIUM [Concomitant]
  18. ZYRTEC [Concomitant]

REACTIONS (4)
  - DYSPNOEA [None]
  - BRONCHITIS CHRONIC [None]
  - COUGH [None]
  - RED BLOOD CELL SEDIMENTATION RATE INCREASED [None]
